FAERS Safety Report 8485610-7 (Version None)
Quarter: 2012Q3

REPORT INFORMATION
  Report Type: 
  Country: None (occurrence: None)
  Receive Date: 20120703
  Receipt Date: 20120626
  Transmission Date: 20120928
  Serious: Yes (Hospitalization)
  Sender: FDA-Public Use
  Company Number: NL-JNJFOC-20120700910

PATIENT
  Sex: Female
  Weight: 55 kg

DRUGS (7)
  1. XARELTO [Suspect]
     Indication: THROMBOSIS PROPHYLAXIS
     Route: 048
     Dates: start: 20120424, end: 20120519
  2. RAMIPRIL [Concomitant]
  3. ASPIRIN [Suspect]
     Indication: ILL-DEFINED DISORDER
  4. PERSANTIN [Concomitant]
  5. CRESTOR [Concomitant]
     Route: 048
  6. XARELTO [Suspect]
     Indication: HIP ARTHROPLASTY
     Route: 048
     Dates: start: 20120424, end: 20120519
  7. PRIMPERAN TAB [Concomitant]

REACTIONS (6)
  - NAUSEA [None]
  - VOMITING [None]
  - NORMOCHROMIC NORMOCYTIC ANAEMIA [None]
  - GASTROINTESTINAL HAEMORRHAGE [None]
  - DIARRHOEA [None]
  - MALAISE [None]
